FAERS Safety Report 5953033-8 (Version None)
Quarter: 2008Q4

REPORT INFORMATION
  Report Type: 
  Country: None (occurrence: None)
  Receive Date: 20081114
  Receipt Date: 20080908
  Transmission Date: 20090506
  Serious: Yes (Hospitalization)
  Sender: FDA-Public Use
  Company Number: US-BRISTOL-MYERS SQUIBB COMPANY-14328215

PATIENT
  Age: 50 Year
  Sex: Female
  Weight: 98 kg

DRUGS (5)
  1. IXEMPRA KIT [Suspect]
     Indication: BREAST CANCER METASTATIC
     Dosage: EARLIER RECEIVED ON 10-JUN-08. STRENGTH 45 MG.
     Route: 042
     Dates: start: 20080701, end: 20080701
  2. CIMETIDINE [Concomitant]
  3. DIPHENHYDRAMINE HCL [Concomitant]
  4. ALOXI [Concomitant]
  5. NEULASTA [Concomitant]

REACTIONS (1)
  - FEBRILE NEUTROPENIA [None]
